FAERS Safety Report 21665426 (Version 4)
Quarter: 2023Q1

REPORT INFORMATION
  Report Type: Report from Study
  Country: AU (occurrence: AU)
  Receive Date: 20221201
  Receipt Date: 20230102
  Transmission Date: 20230417
  Serious: Yes (Hospitalization, Other)
  Sender: FDA-Public Use
  Company Number: AU-ABBVIE-4218736

PATIENT
  Sex: Male

DRUGS (2)
  1. CARBIDOPA\LEVODOPA [Suspect]
     Active Substance: CARBIDOPA\LEVODOPA
     Indication: Parkinson^s disease
     Dosage: DURATION TEXT: 16 HOURS
     Route: 050
     Dates: start: 20190408
  2. CARBIDOPA\LEVODOPA [Suspect]
     Active Substance: CARBIDOPA\LEVODOPA

REACTIONS (8)
  - Embedded device [Unknown]
  - Muscle atrophy [Unknown]
  - Decubitus ulcer [Unknown]
  - Weight decreased [Recovering/Resolving]
  - Mobility decreased [Unknown]
  - Confusional state [Unknown]
  - Dyskinesia [Unknown]
  - Malaise [Unknown]

NARRATIVE: CASE EVENT DATE: 20220101
